FAERS Safety Report 6044266-3 (Version None)
Quarter: 2009Q1

REPORT INFORMATION
  Report Type: 
  Country: None (occurrence: None)
  Receive Date: 20090120
  Receipt Date: 20090109
  Transmission Date: 20090719
  Serious: Yes (Disabling, Other)
  Sender: FDA-Public Use
  Company Number: US-MERCK-0808USA01437

PATIENT
  Age: 42 Year
  Sex: Female

DRUGS (2)
  1. FOSAMAX [Suspect]
     Indication: OSTEOPOROSIS
     Route: 048
     Dates: start: 20020212, end: 20060421
  2. ACTONEL [Concomitant]
     Indication: OSTEOPOROSIS
     Route: 065
     Dates: start: 20020212, end: 20060421

REACTIONS (10)
  - ANXIETY [None]
  - ARTHRITIS [None]
  - ASTHMA [None]
  - BIPOLAR DISORDER [None]
  - DENTAL CARIES [None]
  - DEPRESSION [None]
  - GINGIVAL BLEEDING [None]
  - GINGIVAL DISORDER [None]
  - INFLAMMATORY BOWEL DISEASE [None]
  - OSTEONECROSIS [None]
